FAERS Safety Report 13534232 (Version 1)
Quarter: 2017Q2

REPORT INFORMATION
  Report Type: Spontaneous
  Country: None (occurrence: US)
  Receive Date: 20170510
  Receipt Date: 20170510
  Transmission Date: 20170830
  Serious: No
  Sender: FDA-Public Use
  Company Number: US-SPEAR PHARMACEUTICALS-2020563

PATIENT
  Age: 77 Year
  Sex: Female
  Weight: 62.27 kg

DRUGS (2)
  1. BLOOD PRESSURE MEDS (FOR APPROX 30 YEARS) [Concomitant]
  2. FLUOROURACIL. [Suspect]
     Active Substance: FLUOROURACIL
     Indication: ACTINIC KERATOSIS
     Route: 061
     Dates: start: 20160703, end: 20160802

REACTIONS (6)
  - Unevaluable event [Recovered/Resolved]
  - Pain [None]
  - Erythema [None]
  - Poor peripheral circulation [None]
  - Injury [None]
  - Swelling [None]

NARRATIVE: CASE EVENT DATE: 20160703
